FAERS Safety Report 8952850 (Version 1)
Quarter: 2012Q4

REPORT INFORMATION
  Report Type: 
  Country: CN (occurrence: CN)
  Receive Date: 20121203
  Receipt Date: 20121203
  Transmission Date: 20130627
  Serious: Yes (Other)
  Sender: FDA-Public Use
  Company Number: PHHY2012CN108179

PATIENT
  Age: 59 Year
  Sex: Female
  Weight: 62 kg

DRUGS (1)
  1. LESCOL [Suspect]
     Indication: HEPATIC STEATOSIS
     Dosage: 40 mg, QD
     Route: 048
     Dates: start: 20100826, end: 20100905

REACTIONS (5)
  - Blood acid phosphatase increased [Recovering/Resolving]
  - Liver function test abnormal [Recovering/Resolving]
  - Gamma-glutamyltransferase increased [Recovering/Resolving]
  - Alanine aminotransferase increased [Recovering/Resolving]
  - Aspartate aminotransferase increased [Recovering/Resolving]
